FAERS Safety Report 9766176 (Version 1)
Quarter: 2013Q4

REPORT INFORMATION
  Report Type: Spontaneous
  Country: US (occurrence: US)
  Receive Date: 20131217
  Receipt Date: 20131217
  Transmission Date: 20140711
  Serious: No
  Sender: FDA-Public Use
  Company Number: US-GLAXOSMITHKLINE-A1021004A

PATIENT
  Age: 60 Year
  Sex: Male
  Weight: 93.2 kg

DRUGS (2)
  1. VOTRIENT [Suspect]
     Indication: SARCOMA
     Dosage: 800MG PER DAY
     Route: 048
     Dates: end: 201307
  2. LISINOPRIL [Concomitant]
     Route: 048

REACTIONS (7)
  - Nausea [Unknown]
  - Vomiting [Unknown]
  - Diarrhoea [Unknown]
  - Hair colour changes [Unknown]
  - Impaired healing [Unknown]
  - Asthenia [Unknown]
  - Drug ineffective [Unknown]
